FAERS Safety Report 17453050 (Version 1)
Quarter: 2020Q1

REPORT INFORMATION
  Report Type: Spontaneous
  Country: US (occurrence: US)
  Receive Date: 20200224
  Receipt Date: 20200224
  Transmission Date: 20200409
  Serious: No
  Sender: FDA-Public Use
  Company Number: US-PFIZER INC-2020080141

PATIENT
  Age: 47 Year
  Sex: Female

DRUGS (13)
  1. INDOMETHACIN. [Suspect]
     Active Substance: INDOMETHACIN
     Dosage: UNK
  2. TOLMETIN [Suspect]
     Active Substance: TOLMETIN
     Dosage: UNK
  3. DICLOFENAC SODIUM. [Suspect]
     Active Substance: DICLOFENAC SODIUM
     Dosage: UNK
  4. KETOROLAC TROMETHAMINE. [Suspect]
     Active Substance: KETOROLAC TROMETHAMINE
     Dosage: UNK
  5. MELOXICAM. [Suspect]
     Active Substance: MELOXICAM
     Dosage: UNK
  6. IBUPROFEN. [Suspect]
     Active Substance: IBUPROFEN
     Dosage: UNK
  7. CELECOXIB. [Suspect]
     Active Substance: CELECOXIB
     Dosage: UNK
  8. DIFLUNISAL. [Suspect]
     Active Substance: DIFLUNISAL
     Dosage: UNK
  9. KETOPROFEN. [Suspect]
     Active Substance: KETOPROFEN
     Dosage: UNK
  10. NABUMETONE. [Suspect]
     Active Substance: NABUMETONE
     Dosage: UNK
  11. OXAPROZIN. [Suspect]
     Active Substance: OXAPROZIN
     Dosage: UNK
  12. ASPIRIN [ACETYLSALICYLIC ACID] [Suspect]
     Active Substance: ASPIRIN
     Dosage: UNK
  13. NAPROXEN. [Suspect]
     Active Substance: NAPROXEN
     Dosage: UNK

REACTIONS (6)
  - Gastrooesophageal reflux disease [Unknown]
  - Nausea [Unknown]
  - Chronic gastritis [Unknown]
  - Abdominal pain upper [Unknown]
  - Condition aggravated [Unknown]
  - Feeding disorder [Unknown]
